FAERS Safety Report 5331787-1 (Version None)
Quarter: 2007Q2

REPORT INFORMATION
  Report Type: 
  Country: None (occurrence: None)
  Receive Date: 20070517
  Receipt Date: 20070502
  Transmission Date: 20071010
  Serious: Yes (Other)
  Sender: FDA-Public Use
  Company Number: 2007SP007761

PATIENT
  Age: 38 Year
  Sex: Female
  Weight: 77.1115 kg

DRUGS (1)
  1. CLARITIN [Suspect]
     Indication: SNEEZING
     Dosage: 1 DF; QOD;PO
     Route: 048
     Dates: start: 20070313, end: 20070406

REACTIONS (8)
  - DEPRESSION [None]
  - DISTURBANCE IN ATTENTION [None]
  - FEELING ABNORMAL [None]
  - FOOD CRAVING [None]
  - MOOD ALTERED [None]
  - NIGHTMARE [None]
  - SUICIDAL IDEATION [None]
  - WEIGHT INCREASED [None]
